FAERS Safety Report 17572020 (Version 5)
Quarter: 2021Q1

REPORT INFORMATION
  Report Type: Spontaneous
  Country: ES (occurrence: ES)
  Receive Date: 20200323
  Receipt Date: 20210323
  Transmission Date: 20210419
  Serious: Yes (Hospitalization, Other)
  Sender: FDA-Public Use
  Company Number: ES-MYLANLABS-2020M1029001

PATIENT
  Age: 78 Year
  Sex: Male

DRUGS (8)
  1. LEVOFLOXACIN. [Suspect]
     Active Substance: LEVOFLOXACIN
     Indication: STAPHYLOCOCCAL INFECTION
     Dosage: UNK
     Route: 048
  2. AMIKACIN                           /00391002/ [Suspect]
     Active Substance: AMIKACIN
     Indication: PSEUDOMONAS INFECTION
  3. LEVOFLOXACIN. [Suspect]
     Active Substance: LEVOFLOXACIN
     Indication: OSTEOMYELITIS
  4. LEVOFLOXACIN. [Suspect]
     Active Substance: LEVOFLOXACIN
     Indication: PSEUDOMONAS INFECTION
  5. CEFTAZIDIME. [Suspect]
     Active Substance: CEFTAZIDIME
     Indication: PSEUDOMONAS INFECTION
     Dosage: UNK
     Route: 065
  6. AMIKACIN                           /00391002/ [Suspect]
     Active Substance: AMIKACIN
     Indication: OSTEOMYELITIS
     Dosage: UNK
     Route: 065
  7. CEFTAZIDIME. [Suspect]
     Active Substance: CEFTAZIDIME
     Indication: STAPHYLOCOCCAL INFECTION
  8. AMIKACIN                           /00391002/ [Suspect]
     Active Substance: AMIKACIN
     Indication: STAPHYLOCOCCAL INFECTION

REACTIONS (3)
  - Therapeutic product effect incomplete [Unknown]
  - Condition aggravated [Recovered/Resolved]
  - Toxic skin eruption [Recovered/Resolved]
